FAERS Safety Report 8152497-1 (Version None)
Quarter: 2012Q1

REPORT INFORMATION
  Report Type: 
  Country: None (occurrence: None)
  Receive Date: 20120202
  Receipt Date: 20120120
  Transmission Date: 20120608
  Serious: Yes (Hospitalization)
  Sender: FDA-Public Use
  Company Number: US-145279

PATIENT
  Age: 65 Year
  Sex: Male
  Weight: 101.6057 kg

DRUGS (2)
  1. WINRHO SDF LIQUID [Suspect]
     Indication: AUTOIMMUNE THROMBOCYTOPENIA
     Dosage: (73.66 UG/KG TOTAL)
     Dates: start: 20120111, end: 20120111
  2. ANTINEOPLASTIC AGENTS [Concomitant]

REACTIONS (2)
  - HAEMOLYSIS [None]
  - ANAEMIA [None]
